FAERS Safety Report 9140003 (Version 1)
Quarter: 2013Q1

REPORT INFORMATION
  Report Type: Spontaneous
  Country: US (occurrence: US)
  Receive Date: 20130305
  Receipt Date: 20130305
  Transmission Date: 20140127
  Serious: Yes (Other)
  Sender: FDA-Public Use
  Company Number: US-PFIZER INC-2013074988

PATIENT
  Sex: Male

DRUGS (8)
  1. NEURONTIN [Suspect]
     Indication: NEUROPATHY PERIPHERAL
     Dosage: 400 MG, 1X/DAY
     Route: 048
  2. POTASSIUM [Concomitant]
     Dosage: 10 MG, 1X/DAY
  3. CARVEDILOL [Concomitant]
     Dosage: 3.125 MG, 1X/DAY
  4. FUROSEMIDE [Concomitant]
     Dosage: 10 MG, 1X/DAY
  5. VITAMIN D [Concomitant]
     Dosage: UNK, 1XDAY
  6. ASPIRIN [Concomitant]
     Dosage: 81 MG, 1X/DAY
  7. PRAVASTATIN [Concomitant]
     Dosage: 40 MG, 1X/DAY
  8. VITAMIN B12 [Concomitant]
     Dosage: UNK, MONTHLY

REACTIONS (1)
  - Transient acantholytic dermatosis [Not Recovered/Not Resolved]
